FAERS Safety Report 10544838 (Version 2)
Quarter: 2015Q1

REPORT INFORMATION
  Report Type: Spontaneous
  Country: US (occurrence: None)
  Receive Date: 20141020
  Receipt Date: 20150120
  Transmission Date: 20150720
  Serious: No
  Sender: FDA-Public Use
  Company Number: AEGR000577

PATIENT
  Age: 74 Year
  Sex: Female
  Weight: 83.9 kg

DRUGS (4)
  1. JUXTAPID [Suspect]
     Active Substance: LOMITAPIDE MESYLATE
     Indication: TYPE IIA HYPERLIPIDAEMIA
     Route: 048
     Dates: start: 20140627, end: 20141111
  2. LOVASTATIN. [Concomitant]
     Active Substance: LOVASTATIN
  3. COUMADIN [Suspect]
     Active Substance: WARFARIN SODIUM
     Indication: PROSTHETIC VESSEL IMPLANTATION
     Dosage: AS DIRECTED
  4. WELCHOL (COLESEVELAM HYDROCHLORIDE) (625 MILLIGRAM, TABLET) (COLESEVELAM HYDROCHLORIDE) [Concomitant]
     Active Substance: COLESEVELAM HYDROCHLORIDE

REACTIONS (7)
  - Dyspepsia [None]
  - Nausea [None]
  - Drug interaction [None]
  - Weight decreased [None]
  - Diarrhoea [None]
  - International normalised ratio increased [None]
  - Food interaction [None]

NARRATIVE: CASE EVENT DATE: 201406
